FAERS Safety Report 8265758-2 (Version None)
Quarter: 2012Q2

REPORT INFORMATION
  Report Type: 
  Country: None (occurrence: None)
  Receive Date: 20120406
  Receipt Date: 20120329
  Transmission Date: 20120825
  Serious: Yes (Other)
  Sender: FDA-Public Use
  Company Number: DE-FRI-1000029572

PATIENT
  Age: 64 Year
  Sex: Male

DRUGS (14)
  1. AMITRIPTYLINE HYDROCHLORIDE [Suspect]
  2. TORSEMIDE [Concomitant]
  3. PREDNISOLONE [Concomitant]
  4. IBUPROFEN [Concomitant]
  5. CITALOPRAM HYDROBROMIDE [Suspect]
     Dosage: 20 MG
     Route: 048
  6. METFORMIN HCL [Concomitant]
  7. CARBIMAZOL [Concomitant]
  8. FENTANYL CITRATE [Suspect]
     Route: 062
  9. HYDROCHLOROTHIAZIDE [Concomitant]
  10. CITALOPRAM HYDROBROMIDE [Suspect]
     Dosage: 10 MG
     Route: 048
  11. CYCLOSPORINE [Suspect]
  12. RAMIPRIL [Concomitant]
  13. PANTOPRAZOLE [Concomitant]
  14. INSULIN [Concomitant]

REACTIONS (2)
  - SEROTONIN SYNDROME [None]
  - DRUG INTERACTION [None]
